FAERS Safety Report 7008852-6 (Version None)
Quarter: 2010Q3

REPORT INFORMATION
  Report Type: 
  Country: None (occurrence: None)
  Receive Date: 20100923
  Receipt Date: 20100909
  Transmission Date: 20110219
  Serious: Yes (Hospitalization, Other)
  Sender: FDA-Public Use
  Company Number: IT-PAR PHARMACEUTICAL, INC-2010SCPR002104

PATIENT
  Age: 39 Year
  Sex: Male

DRUGS (1)
  1. CABERGOLINE [Suspect]
     Indication: PROLACTINOMA
     Dosage: 0.5 MG, THREE DAYS A WEEK FOR 2 MONTHS
     Route: 065

REACTIONS (1)
  - CEREBROSPINAL FLUID RHINORRHOEA [None]
